FAERS Safety Report 15765261 (Version 1)
Quarter: 2018Q4

REPORT INFORMATION
  Report Type: Spontaneous
  Country: PL (occurrence: PL)
  Receive Date: 20181227
  Receipt Date: 20181227
  Transmission Date: 20190205
  Serious: Yes (Life-Threatening, Other)
  Sender: FDA-Public Use
  Company Number: PL-SA-2018SA390726

PATIENT
  Age: 27 Year
  Sex: Female
  Weight: 56 kg

DRUGS (3)
  1. BISEPTOL [Concomitant]
     Active Substance: SULFAMETHOXAZOLE\TRIMETHOPRIM
     Indication: INFECTION PROPHYLAXIS
     Dosage: 2X480 MG
     Route: 048
     Dates: start: 20180705, end: 20181010
  2. LEMTRADA [Suspect]
     Active Substance: ALEMTUZUMAB
     Indication: MULTIPLE SCLEROSIS
     Route: 041
  3. HEVIRAN [ACICLOVIR] [Concomitant]
     Indication: INFECTION PROPHYLAXIS
     Dosage: 2X0.8
     Route: 048
     Dates: start: 20180705, end: 20181030

REACTIONS (5)
  - Neutropenia [Recovered/Resolved]
  - Lymphopenia [Recovered/Resolved]
  - Rash erythematous [Unknown]
  - Leukopenia [Recovered/Resolved]
  - Pyrexia [Unknown]

NARRATIVE: CASE EVENT DATE: 20180705
